FAERS Safety Report 13430522 (Version 2)
Quarter: 2018Q4

REPORT INFORMATION
  Report Type: Spontaneous
  Country: US (occurrence: US)
  Receive Date: 20170412
  Receipt Date: 20181106
  Transmission Date: 20190204
  Serious: No
  Sender: FDA-Public Use
  Company Number: US-PFIZER INC-2017154083

PATIENT
  Sex: Male
  Weight: 57.15 kg

DRUGS (1)
  1. LYRICA [Suspect]
     Active Substance: PREGABALIN
     Indication: NEUROPATHY PERIPHERAL
     Dosage: 150 MG, 2X/DAY (2 75 MG CAPSULES TWICE A DAY)

REACTIONS (9)
  - Somnolence [Unknown]
  - Pain in extremity [Unknown]
  - Dysgraphia [Unknown]
  - Fall [Unknown]
  - Intentional product misuse [Unknown]
  - Malaise [Unknown]
  - Nausea [Unknown]
  - Withdrawal syndrome [Unknown]
  - Influenza like illness [Unknown]
